FAERS Safety Report 6491846-7 (Version None)
Quarter: 2009Q4

REPORT INFORMATION
  Report Type: 
  Country: None (occurrence: None)
  Receive Date: 20091125
  Receipt Date: 20090518
  Transmission Date: 20100525
  Serious: Yes (Other)
  Sender: FDA-Public Use
  Company Number: 2009BH008752

PATIENT
  Age: 25 Month
  Sex: Female
  Weight: 9.6 kg

DRUGS (11)
  1. DIANEAL [Suspect]
     Indication: PERITONEAL DIALYSIS
     Dosage: 3 L ; EVERY DAY ; IP
     Route: 033
     Dates: start: 20070507
  2. HEPARIN [Concomitant]
  3. EPOGEN [Concomitant]
  4. ROCALTROL [Concomitant]
  5. CALCIUM CARBONATE [Concomitant]
  6. IRON [Concomitant]
  7. ZANTAC [Concomitant]
  8. MULTI-VITAMINS [Concomitant]
  9. SODIUM CHLORIDE [Concomitant]
  10. ISRADIPINE [Concomitant]
  11. KAYEXALATE [Concomitant]

REACTIONS (2)
  - DEVICE LEAKAGE [None]
  - PERITONITIS BACTERIAL [None]
